FAERS Safety Report 25963257 (Version 2)
Quarter: 2025Q4

REPORT INFORMATION
  Report Type: Report from Study
  Country: CA (occurrence: CA)
  Receive Date: 20251027
  Receipt Date: 20251222
  Transmission Date: 20260119
  Serious: Yes (Hospitalization, Other)
  Sender: PFIZER
  Company Number: CA-PFIZER INC-202500172136

PATIENT
  Age: 57 Year
  Sex: Male
  Weight: 77 kg

DRUGS (3)
  1. IXIFI [Suspect]
     Active Substance: INFLIXIMAB-QBTX
     Indication: Crohn^s disease
     Dosage: 10 MG/KG, EVERY 8 WEEKS
     Route: 042
     Dates: start: 20250728, end: 2025
  2. IXIFI [Suspect]
     Active Substance: INFLIXIMAB-QBTX
     Dosage: 740 MG, AFTER 12 WEEKS AND 2 DAYS, (10 MG/KG , EVERY 8 WEEKS)
     Route: 042
     Dates: start: 20251022
  3. IXIFI [Suspect]
     Active Substance: INFLIXIMAB-QBTX
     Dosage: 770 MG, EVERY 8 WEEKS (10 MG/KG, EVERY 8 WEEKS)
     Route: 042
     Dates: start: 20251217

REACTIONS (2)
  - Colectomy [Unknown]
  - Condition aggravated [Unknown]

NARRATIVE: CASE EVENT DATE: 20250912
